FAERS Safety Report 6919693-X (Version None)
Quarter: 2010Q3

REPORT INFORMATION
  Report Type: 
  Country: None (occurrence: None)
  Receive Date: 20100811
  Receipt Date: 20100805
  Transmission Date: 20110219
  Serious: Yes (Other)
  Sender: FDA-Public Use
  Company Number: MX-BRISTOL-MYERS SQUIBB COMPANY-15231624

PATIENT
  Age: 59 Year
  Sex: Male

DRUGS (1)
  1. COAPROVEL TABS 300MG/ 25MG [Suspect]
     Dosage: 1DF=300MG/25MG
     Route: 065

REACTIONS (1)
  - RENAL DISORDER [None]
